FAERS Safety Report 4727569-1 (Version None)
Quarter: 2005Q3

REPORT INFORMATION
  Report Type: 
  Country: None (occurrence: None)
  Receive Date: 20050728
  Receipt Date: 20050504
  Transmission Date: 20060218
  Serious: Yes (Other)
  Sender: FDA-Public Use
  Company Number: US-BRISTOL-MYERS SQUIBB COMPANY-12959987

PATIENT
  Sex: Male

DRUGS (1)
  1. STAVUDINE [Suspect]

REACTIONS (1)
  - FACIAL WASTING [None]
